FAERS Safety Report 10229438 (Version 1)
Quarter: 2014Q2

REPORT INFORMATION
  Report Type: Spontaneous
  Country: US (occurrence: None)
  Receive Date: 20140609
  Receipt Date: 20140609
  Transmission Date: 20141212
  Serious: Yes (Death)
  Sender: FDA-Public Use
  Company Number: 2014COV00001

PATIENT
  Age: 9 Year
  Sex: Male

DRUGS (1)
  1. PLAQUENIL [Suspect]
     Route: 048
     Dates: start: 20140506, end: 20140506

REACTIONS (1)
  - Wrong drug administered [None]
